FAERS Safety Report 20767855 (Version 2)
Quarter: 2022Q2

REPORT INFORMATION
  Report Type: Report from Study
  Country: US (occurrence: US)
  Receive Date: 20220429
  Receipt Date: 20220526
  Transmission Date: 20220721
  Serious: Yes (Life-Threatening, Other)
  Sender: FDA-Public Use
  Company Number: US-drreddys-CLI/USA/22/0149139

PATIENT
  Age: 30 Year
  Sex: Female

DRUGS (2)
  1. ZENATANE [Suspect]
     Active Substance: ISOTRETINOIN
     Indication: Product used for unknown indication
     Dosage: RMA ISSUE DATE: 27 SEPTEMBER 2021 12:00:00 AM, 25 OCTOBER 2021 12:00:00 AM, 29 NOVEMBER 2021 12:00:0
     Dates: start: 20210824, end: 202202
  2. ZENATANE [Concomitant]
     Active Substance: ISOTRETINOIN
     Indication: Product used for unknown indication
     Dosage: RMA ISSUE DATE: 22 OCTOBER 2019 12:00:00 AM, 21 AUGUST 2020 12:00:00 AM, 23 SEPTEMBER 2020 12:00:00

REACTIONS (2)
  - Exposure during pregnancy [Unknown]
  - Abortion induced [Unknown]

NARRATIVE: CASE EVENT DATE: 20220327
